FAERS Safety Report 11233916 (Version 2)
Quarter: 2015Q3

REPORT INFORMATION
  Report Type: Spontaneous
  Country: GB (occurrence: GB)
  Receive Date: 20150702
  Receipt Date: 20150925
  Transmission Date: 20151125
  Serious: Yes (Disabling)
  Sender: FDA-Public Use
  Company Number: GB-TEVA-574105ACC

PATIENT
  Age: 81 Year
  Sex: Male

DRUGS (2)
  1. DIURETIC [Concomitant]
     Active Substance: UNSPECIFIED INGREDIENT
  2. RISEDRONIC ACID [Suspect]
     Active Substance: RISEDRONIC ACID
     Indication: OSTEOPOROSIS
     Dosage: WEEKLY
     Route: 048
     Dates: end: 201501

REACTIONS (1)
  - Pulmonary fibrosis [Not Recovered/Not Resolved]

NARRATIVE: CASE EVENT DATE: 201501
